FAERS Safety Report 6756957-7 (Version None)
Quarter: 2010Q2

REPORT INFORMATION
  Report Type: 
  Country: None (occurrence: None)
  Receive Date: 20100603
  Receipt Date: 20100603
  Transmission Date: 20101027
  Serious: Yes (Hospitalization)
  Sender: FDA-Public Use
  Company Number: None

PATIENT
  Age: 85 Year
  Sex: Male
  Weight: 55 kg

DRUGS (3)
  1. DILTIAZEM [Suspect]
     Indication: HYPERTENSION
     Dosage: 240 MG EVERY DAY PO
     Route: 048
     Dates: start: 20060720, end: 20100601
  2. LISINOPRIL [Suspect]
     Indication: HYPERTENSION
     Dosage: 2.5 MG EVERY DAY PO
     Route: 048
     Dates: start: 20090720, end: 20100601
  3. LISINOPRIL [Suspect]
     Indication: RENAL FAILURE CHRONIC
     Dosage: 2.5 MG EVERY DAY PO
     Route: 048
     Dates: start: 20090720, end: 20100601

REACTIONS (1)
  - HYPOTENSION [None]
